FAERS Safety Report 6959236-8 (Version None)
Quarter: 2010Q3

REPORT INFORMATION
  Report Type: 
  Country: None (occurrence: None)
  Receive Date: 20100831
  Receipt Date: 20100819
  Transmission Date: 20110219
  Serious: Yes (Hospitalization, Other)
  Sender: FDA-Public Use
  Company Number: US-PFIZER INC-2010104910

PATIENT
  Sex: Male
  Weight: 84 kg

DRUGS (13)
  1. CHANTIX [Suspect]
     Indication: SMOKING CESSATION THERAPY
     Dosage: 0.5 MG, 1X/DAY
     Route: 048
     Dates: start: 20091201, end: 20100101
  2. ALPRAZOLAM [Suspect]
     Indication: ANXIETY
     Dosage: 2 MG, UNK 4-5 MONTHS 2MG 5 TO 6 X DAY
     Dates: start: 20100101
  3. TRAZODONE HCL [Suspect]
     Indication: PAIN
     Dosage: 100 MG, 1X/DAY
  4. ACETAMINOPHEN AND HYDROCODONE BITARTRATE [Suspect]
     Indication: PAIN
     Dosage: UNK
  5. CARISOPRODOL [Suspect]
     Indication: PAIN
     Dosage: UNK
  6. METHADONE [Suspect]
     Indication: PAIN
     Dosage: 150 MG, 1X/DAY
     Dates: end: 20100101
  7. HYDROCORTISONE [Concomitant]
     Indication: HAEMORRHOIDS
     Dosage: 25 MG, 4X/DAY
  8. DICLOFENAC SODIUM [Concomitant]
     Dosage: 75 MG, 2X/DAY
  9. LEVOTHYROXINE [Concomitant]
     Indication: ABDOMINAL DISCOMFORT
     Dosage: 75 UG, 1X/DAY
  10. METOPROLOL TARTRATE [Concomitant]
     Indication: ABDOMINAL DISCOMFORT
     Dosage: 25 MG, 2X/DAY
  11. CYMBALTA [Concomitant]
     Dosage: 60 MG, 1X/DAY
     Route: 048
  12. TRAMADOL HYDROCHLORIDE [Concomitant]
     Indication: PAIN
     Dosage: 50 MG, 1X/DAY
  13. PROTONIX [Concomitant]
     Indication: ABDOMINAL DISCOMFORT
     Dosage: 40 MG, 1X/DAY
     Route: 048

REACTIONS (10)
  - CONVULSION [None]
  - DIARRHOEA [None]
  - DRUG DEPENDENCE [None]
  - FEELING COLD [None]
  - HOT FLUSH [None]
  - INTENTIONAL OVERDOSE [None]
  - MUSCULOSKELETAL STIFFNESS [None]
  - PNEUMONIA [None]
  - SLEEP DISORDER [None]
  - WEIGHT INCREASED [None]
